FAERS Safety Report 7302930-X (Version None)
Quarter: 2011Q1

REPORT INFORMATION
  Report Type: 
  Country: None (occurrence: None)
  Receive Date: 20110218
  Receipt Date: 20110209
  Transmission Date: 20110831
  Serious: Yes (Hospitalization)
  Sender: FDA-Public Use
  Company Number: CH-ASTRAZENECA-2011SE08065

PATIENT
  Age: 79 Year
  Sex: Female

DRUGS (3)
  1. PANTOZOL [Suspect]
     Route: 048
  2. BELOC ZOC [Suspect]
     Indication: ESSENTIAL HYPERTENSION
     Route: 048
  3. METHOTREXATE [Suspect]
     Indication: CHONDROCALCINOSIS
     Route: 048
     Dates: start: 20101208, end: 20101201

REACTIONS (5)
  - STOMATITIS [None]
  - ABDOMINAL PAIN [None]
  - PANCYTOPENIA [None]
  - DRUG PRESCRIBING ERROR [None]
  - DIARRHOEA [None]
